FAERS Safety Report 4345989-4 (Version None)
Quarter: 2004Q2

REPORT INFORMATION
  Report Type: 
  Country: None (occurrence: None)
  Receive Date: 20040420
  Receipt Date: 20040405
  Transmission Date: 20050107
  Serious: Yes (Death)
  Sender: FDA-Public Use
  Company Number: 2004-DE-02046BY

PATIENT
  Sex: Male

DRUGS (3)
  1. KINZALKOMB (MICARDIS HCT) (NR) (HYDROCHLOROTHIAZIDE) [Suspect]
     Indication: HYPERTENSION
     Dosage: 80 MG  PO
     Route: 048
     Dates: start: 20030523
  2. FUROSEMIDE [Concomitant]
  3. SPIRONOLACTIN PLUS [Concomitant]

REACTIONS (2)
  - BLOOD PRESSURE INCREASED [None]
  - HEART RATE INCREASED [None]
